FAERS Safety Report 10460261 (Version 1)
Quarter: 2014Q3

REPORT INFORMATION
  Report Type: Spontaneous
  Country: US (occurrence: US)
  Receive Date: 20140917
  Receipt Date: 20140917
  Transmission Date: 20150326
  Serious: Yes (Life-Threatening, Hospitalization)
  Sender: FDA-Public Use
  Company Number: PHHY2014US118159

PATIENT
  Age: 9 Year
  Sex: Female

DRUGS (1)
  1. CLINDAMYCIN [Suspect]
     Active Substance: CLINDAMYCIN\CLINDAMYCIN PHOSPHATE
     Indication: PHARYNGITIS STREPTOCOCCAL

REACTIONS (11)
  - Skin discolouration [Recovering/Resolving]
  - Sepsis [Recovering/Resolving]
  - Nausea [Recovering/Resolving]
  - Crepitations [Recovering/Resolving]
  - Clostridium difficile infection [Recovering/Resolving]
  - Colitis ischaemic [Recovering/Resolving]
  - Abdominal pain [Recovering/Resolving]
  - Diarrhoea [Recovering/Resolving]
  - Septic shock [Recovering/Resolving]
  - Gas gangrene [Recovering/Resolving]
  - Pyrexia [Recovering/Resolving]
